FAERS Safety Report 9535101 (Version 1)
Quarter: 2013Q3

REPORT INFORMATION
  Report Type: Spontaneous
  Country: FR (occurrence: FR)
  Receive Date: 20130918
  Receipt Date: 20130918
  Transmission Date: 20140515
  Serious: Yes (Hospitalization)
  Sender: FDA-Public Use
  Company Number: FR-B.I. PHARMACEUTICALS,INC./RIDGEFIELD-2013-FF-02291FF

PATIENT
  Age: 69 Year
  Sex: Female

DRUGS (4)
  1. MOBIC [Suspect]
     Route: 048
     Dates: end: 20130314
  2. BACTRIM [Suspect]
     Route: 048
     Dates: start: 20130207, end: 20130314
  3. LASILIX [Suspect]
     Route: 048
     Dates: end: 20130314
  4. GAVISCON [Suspect]
     Route: 048

REACTIONS (4)
  - Meningitis [Recovered/Resolved]
  - Confusional state [Recovered/Resolved]
  - Pyrexia [Recovered/Resolved]
  - Headache [Recovered/Resolved]
